FAERS Safety Report 9510640 (Version 1)
Quarter: 2013Q3

REPORT INFORMATION
  Report Type: Spontaneous
  Country: IT (occurrence: IT)
  Receive Date: 20130909
  Receipt Date: 20130909
  Transmission Date: 20140515
  Serious: Yes (Life-Threatening)
  Sender: FDA-Public Use
  Company Number: IT-ACTAVIS-2013-15823

PATIENT
  Sex: Female

DRUGS (1)
  1. PACLITAXEL (UNKNOWN) [Suspect]
     Indication: BREAST CANCER
     Dosage: 175 MG, SINGLE
     Route: 042
     Dates: start: 20130312, end: 20130312

REACTIONS (1)
  - Bronchospasm [Recovered/Resolved]
